FAERS Safety Report 8907139 (Version 2)
Quarter: 2013Q1

REPORT INFORMATION
  Report Type: Spontaneous
  Country: US (occurrence: US)
  Receive Date: 20121114
  Receipt Date: 20130220
  Transmission Date: 20140127
  Serious: No
  Sender: FDA-Public Use
  Company Number: US-009507513-1211USA004189

PATIENT
  Sex: Male

DRUGS (1)
  1. DULERA [Suspect]
     Dosage: 200/5 MICROGRAM, 2 PUFFS, BID
     Route: 055
     Dates: start: 201207

REACTIONS (2)
  - Incorrect dose administered [Unknown]
  - Device malfunction [Unknown]
